FAERS Safety Report 9989347 (Version 2)
Quarter: 2014Q1

REPORT INFORMATION
  Report Type: Spontaneous
  Country: CA (occurrence: CA)
  Receive Date: 20140310
  Receipt Date: 20140310
  Transmission Date: 20141002
  Serious: Yes (Death, Other)
  Sender: FDA-Public Use
  Company Number: CA-BEH-2013039180

PATIENT
  Age: 79 Year
  Sex: Female
  Weight: 80 kg

DRUGS (12)
  1. PRIVIGEN [Suspect]
     Route: 042
     Dates: start: 20131107
  2. PRIVIGEN [Suspect]
     Route: 042
     Dates: start: 20131107
  3. PRIVIGEN [Suspect]
     Route: 042
     Dates: start: 20131108
  4. PRIVIGEN [Suspect]
     Route: 042
     Dates: start: 20131108
  5. PRIVIGEN [Suspect]
     Route: 042
     Dates: start: 20131109
  6. PRIVIGEN [Suspect]
     Route: 042
     Dates: start: 20131109
  7. PRIVIGEN [Suspect]
     Route: 042
     Dates: start: 20131110
  8. PRIVIGEN [Suspect]
     Indication: GUILLAIN-BARRE SYNDROME
     Route: 042
     Dates: start: 20131110
  9. PRIVIGEN [Suspect]
     Route: 042
     Dates: start: 20131111
  10. PRIVIGEN [Suspect]
     Route: 042
     Dates: start: 20131111
  11. PRIVIGEN [Suspect]
     Route: 042
     Dates: start: 20131112, end: 20131112
  12. PRIVIGEN [Suspect]
     Route: 042
     Dates: start: 20131112, end: 20131112

REACTIONS (3)
  - Death [Fatal]
  - Haemolytic anaemia [Unknown]
  - Haemoglobin decreased [Unknown]
